FAERS Safety Report 7819121-6 (Version None)
Quarter: 2011Q4

REPORT INFORMATION
  Report Type: 
  Country: None (occurrence: None)
  Receive Date: 20111018
  Receipt Date: 20111010
  Transmission Date: 20120403
  Serious: Yes (Other)
  Sender: FDA-Public Use
  Company Number: PHHY2011GB89212

PATIENT
  Age: 60 Year
  Sex: Female
  Weight: 75 kg

DRUGS (3)
  1. IBUPROFEN [Concomitant]
     Dosage: UNK
     Dates: start: 20110714
  2. SIMVASTATIN [Concomitant]
     Dosage: UNK
     Dates: start: 20110526
  3. AMLODIPINE [Suspect]
     Dosage: UNK
     Dates: start: 20110818

REACTIONS (1)
  - JOINT SWELLING [None]
